FAERS Safety Report 9391775 (Version 1)
Quarter: 2013Q3

REPORT INFORMATION
  Report Type: Spontaneous
  Country: BR (occurrence: BR)
  Receive Date: 20130709
  Receipt Date: 20130709
  Transmission Date: 20140515
  Serious: Yes (Other)
  Sender: FDA-Public Use
  Company Number: BR-JNJFOC-20130705778

PATIENT
  Age: 54 Year
  Sex: Female
  Weight: 83 kg

DRUGS (4)
  1. SIMPONI [Suspect]
     Indication: RHEUMATOID ARTHRITIS
     Dosage: DOSAGE 1, INTERVAL 1 ^MINUTE^
     Route: 058
     Dates: start: 20130626
  2. PURAN T4 [Concomitant]
     Indication: HYPOTHYROIDISM
     Route: 065
     Dates: start: 2000
  3. TIBOLONE [Concomitant]
     Indication: HORMONE REPLACEMENT THERAPY
     Route: 065
     Dates: start: 201303
  4. CELEBRA [Concomitant]
     Indication: ARTHRITIS
     Route: 065
     Dates: start: 2012

REACTIONS (6)
  - Depression [Recovered/Resolved]
  - Vaginal haemorrhage [Recovered/Resolved]
  - Hot flush [Recovered/Resolved]
  - Restlessness [Recovered/Resolved]
  - Insomnia [Recovered/Resolved]
  - Pain [Recovered/Resolved]
